FAERS Safety Report 9732923 (Version 2)
Quarter: 2014Q1

REPORT INFORMATION
  Report Type: Spontaneous
  Country: US (occurrence: US)
  Receive Date: 20131205
  Receipt Date: 20140113
  Transmission Date: 20141002
  Serious: Yes (Other)
  Sender: FDA-Public Use
  Company Number: US-TEVA-448521USA

PATIENT
  Age: 28 Year
  Sex: Female
  Weight: 71.28 kg

DRUGS (3)
  1. PARAGARD 380A [Suspect]
     Indication: CONTRACEPTION
     Route: 015
     Dates: start: 20130926, end: 20131129
  2. THYROID THERAPY [Concomitant]
     Indication: THYROID FUNCTION TEST ABNORMAL
  3. KEPPRA [Concomitant]
     Indication: EPILEPSY

REACTIONS (3)
  - Device dislocation [Recovered/Resolved]
  - Device expulsion [Recovered/Resolved]
  - Menorrhagia [Unknown]
